FAERS Safety Report 5876669-1 (Version None)
Quarter: 2008Q3

REPORT INFORMATION
  Report Type: 
  Country: None (occurrence: None)
  Receive Date: 20080910
  Receipt Date: 20080829
  Transmission Date: 20090109
  Serious: Yes (Hospitalization)
  Sender: FDA-Public Use
  Company Number: US-WYE-H05823708

PATIENT
  Sex: Female
  Weight: 73.09 kg

DRUGS (17)
  1. EFFEXOR XR [Suspect]
     Indication: DEPRESSION
     Route: 048
  2. ESTRADIOL [Concomitant]
     Route: 065
  3. BACLOFEN [Concomitant]
     Dosage: 10 TO 20 MG AT BEDTIME
     Route: 065
  4. OXYBUTYNIN [Concomitant]
     Route: 065
  5. LIPITOR [Concomitant]
     Route: 065
  6. ELAVIL [Concomitant]
     Route: 065
  7. SENOKOT [Concomitant]
     Route: 065
  8. WELLBUTRIN [Concomitant]
     Route: 065
  9. LASIX [Concomitant]
     Route: 065
  10. POTASSIUM CHLORIDE [Concomitant]
     Route: 065
  11. ALBUTEROL [Concomitant]
     Dosage: UNKNOWN DOSE AS NEEDED
     Route: 065
  12. BENADRYL [Concomitant]
     Dosage: UNKNOWN
     Route: 065
  13. COMBIVENT [Concomitant]
     Route: 055
  14. ZYPREXA [Concomitant]
     Route: 048
  15. GABAPENTIN [Concomitant]
     Dosage: UNKNOWN
     Route: 065
  16. MS CONTIN [Concomitant]
     Route: 065
  17. SEROQUEL [Concomitant]
     Route: 065

REACTIONS (3)
  - DRUG SCREEN POSITIVE [None]
  - LOSS OF CONSCIOUSNESS [None]
  - UNRESPONSIVE TO STIMULI [None]
